FAERS Safety Report 15758981 (Version 1)
Quarter: 2018Q4

REPORT INFORMATION
  Report Type: Spontaneous
  Country: RU (occurrence: RU)
  Receive Date: 20181225
  Receipt Date: 20181225
  Transmission Date: 20190205
  Serious: Yes (Other)
  Sender: FDA-Public Use
  Company Number: RU-ROCHE-2235901

PATIENT
  Age: 82 Year
  Sex: Female

DRUGS (2)
  1. LEUKERAN [Suspect]
     Active Substance: CHLORAMBUCIL
     Indication: CHRONIC LYMPHOCYTIC LEUKAEMIA
     Route: 048
  2. OBINUTUZUMAB. [Suspect]
     Active Substance: OBINUTUZUMAB
     Indication: CHRONIC LYMPHOCYTIC LEUKAEMIA
     Route: 042

REACTIONS (6)
  - Intentional product use issue [Unknown]
  - Neutropenia [Unknown]
  - Thrombocytopenia [Unknown]
  - Stomatitis [Unknown]
  - Off label use [Unknown]
  - Dysphagia [Unknown]
